FAERS Safety Report 17964954 (Version 1)
Quarter: 2020Q2

REPORT INFORMATION
  Report Type: Report from Study
  Country: ES (occurrence: ES)
  Receive Date: 20200630
  Receipt Date: 20200630
  Transmission Date: 20200714
  Serious: Yes (Hospitalization)
  Sender: FDA-Public Use
  Company Number: ES-MYLANLABS-2020M1059450

PATIENT
  Age: 36 Year
  Sex: Female

DRUGS (5)
  1. PREDNISONA [Concomitant]
     Active Substance: PREDNISONE
     Indication: GLOMERULONEPHRITIS
     Dosage: 50 MG EN DOSIS DESCENDENTE UNIDAD DE FRECUENCIA: 0 DIA
     Route: 048
     Dates: start: 201407
  2. EDEMOX                             /00016901/ [Concomitant]
     Active Substance: ACETAZOLAMIDE
     Indication: HYPERTENSION
     Dosage: 0-1-0, DOSIS UNIDAD FRECUENCIA: 250 MG-MILIGRAMOS, DOSIS POR TOMA: 250 MG-MILIGRAMOS
     Route: 048
     Dates: start: 20141218, end: 20150327
  3. VALSARTAN. [Concomitant]
     Active Substance: VALSARTAN
     Indication: HYPERTENSION
     Dosage: 1-0-0, DOSIS UNIDAD FRECUENCIA: 80 MG-MILIGRAMOS, DOSIS POR TOMA: 80 MG-MILIGRAMOS
     Route: 048
     Dates: start: 20141218, end: 20150327
  4. ALLOPURINOL. [Suspect]
     Active Substance: ALLOPURINOL
     Indication: HYPERURICAEMIA
     Dosage: 0-1-0, DOSIS UNIDAD FRECUENCIA: 100 MG-MILIGRAMOS, DOSIS POR TOMA: 100 MG-MILIGRAMOS
     Route: 048
     Dates: start: 20141218, end: 20150327
  5. OMEPRAZOL                          /00661201/ [Concomitant]
     Active Substance: OMEPRAZOLE
     Indication: PROPHYLAXIS AGAINST GASTROINTESTINAL ULCER
     Dosage: 1 CP, DOSIS UNIDAD FRECUENCIA: 20 MG-MILIGRAMOS || DOSIS POR TOMA: 20 MG-MILIGRAMOS
     Route: 048
     Dates: start: 201407

REACTIONS (4)
  - Drug reaction with eosinophilia and systemic symptoms [Recovered/Resolved]
  - Pancreatitis [Recovered/Resolved]
  - Liver disorder [Recovered/Resolved]
  - Tubulointerstitial nephritis [Recovered/Resolved]

NARRATIVE: CASE EVENT DATE: 20150307
